FAERS Safety Report 8180051-4 (Version None)
Quarter: 2012Q1

REPORT INFORMATION
  Report Type: 
  Country: None (occurrence: None)
  Receive Date: 20120302
  Receipt Date: 20120302
  Transmission Date: 20120608
  Serious: No
  Sender: FDA-Public Use
  Company Number: None

PATIENT
  Age: 50 Year
  Sex: Male
  Weight: 95.254 kg

DRUGS (1)
  1. SODIUM CHLORIDE INJ [Suspect]
     Indication: COLONIC POLYP
     Dosage: 10 ML
     Route: 051
     Dates: start: 20120228, end: 20120228

REACTIONS (1)
  - INJECTION SITE PALLOR [None]
